FAERS Safety Report 6185582-4 (Version None)
Quarter: 2009Q2

REPORT INFORMATION
  Report Type: 
  Country: None (occurrence: None)
  Receive Date: 20090507
  Receipt Date: 20090430
  Transmission Date: 20091009
  Serious: Yes (Other)
  Sender: FDA-Public Use
  Company Number: CIP09001041

PATIENT
  Age: 70 Year
  Sex: Female

DRUGS (1)
  1. ACTONEL [Suspect]
     Dosage: 150 MG ONCE MONTHLY, ORAL
     Route: 048
     Dates: start: 20081001

REACTIONS (3)
  - ABDOMINAL DISTENSION [None]
  - HIATUS HERNIA [None]
  - VOMITING [None]
